FAERS Safety Report 23016000 (Version 1)
Quarter: 2023Q4

REPORT INFORMATION
  Report Type: Spontaneous
  Country: US (occurrence: None)
  Receive Date: 20231001
  Receipt Date: 20231001
  Transmission Date: 20240110
  Serious: No
  Sender: FDA-Public Use
  Company Number: None

PATIENT
  Age: 38 Year
  Sex: Female

DRUGS (1)
  1. BIOSSANCE SQUALANE MOISTURIZER SPF30 [Suspect]
     Active Substance: ZINC OXIDE
     Indication: Prophylaxis against solar radiation
     Dates: start: 20230625, end: 20231001

REACTIONS (7)
  - Swelling of eyelid [None]
  - Application site pruritus [None]
  - Application site swelling [None]
  - Application site pain [None]
  - Application site pain [None]
  - Rash [None]
  - Application site erythema [None]

NARRATIVE: CASE EVENT DATE: 20230625
